FAERS Safety Report 7714707-1 (Version None)
Quarter: 2011Q3

REPORT INFORMATION
  Report Type: 
  Country: None (occurrence: None)
  Receive Date: 20110822
  Receipt Date: 20110805
  Transmission Date: 20111222
  Serious: Yes (Hospitalization)
  Sender: FDA-Public Use
  Company Number: 2011MA011392

PATIENT
  Age: 43 Year
  Sex: Female

DRUGS (9)
  1. VITAMIN B-12 [Concomitant]
  2. GLUCOSAMINE [Concomitant]
  3. DULOXETIME HYDROCHLORIDE [Concomitant]
  4. ARIPIPRAZOLE [Concomitant]
  5. FERROUS SULFATE TAB [Concomitant]
  6. ASCORBIC ACID [Concomitant]
  7. BUPROPION HYDROCHLORIDE [Suspect]
     Indication: MAJOR DEPRESSION
     Dosage: 100 MG;BID;
  8. LEVOTHYROXINE SODIUM [Concomitant]
  9. VITAMIN D [Concomitant]

REACTIONS (1)
  - ACUTE GENERALISED EXANTHEMATOUS PUSTULOSIS [None]
